FAERS Safety Report 18020938 (Version 1)
Quarter: 2020Q3

REPORT INFORMATION
  Report Type: Spontaneous
  Country: US (occurrence: US)
  Receive Date: 20200714
  Receipt Date: 20200714
  Transmission Date: 20201103
  Serious: Yes (Death, Other)
  Sender: FDA-Public Use
  Company Number: US-ENDO PHARMACEUTICALS INC-2020-004338

PATIENT
  Age: 68 Year

DRUGS (2)
  1. OXYCODONE HYDROCHLORIDE. [Suspect]
     Active Substance: OXYCODONE HYDROCHLORIDE
     Indication: PRODUCT USED FOR UNKNOWN INDICATION
     Dosage: UNK UNKNOWN, UNKNOWN
     Route: 048
  2. REGLAN [Suspect]
     Active Substance: METOCLOPRAMIDE HYDROCHLORIDE
     Indication: PRODUCT USED FOR UNKNOWN INDICATION
     Dosage: UNK UNKNOWN, UNKNOWN
     Route: 048

REACTIONS (17)
  - Aspartate aminotransferase abnormal [Unknown]
  - Prothrombin time prolonged [Unknown]
  - Lethargy [Unknown]
  - Muscle rigidity [Unknown]
  - Coma [Unknown]
  - Platelet count decreased [Unknown]
  - Abdominal pain [Unknown]
  - Pyrexia [Unknown]
  - Confusional state [Unknown]
  - Death [Fatal]
  - Hyperthermia [Unknown]
  - Haemoglobin decreased [Unknown]
  - Somnolence [Unknown]
  - Hyperglycaemia [Unknown]
  - Cardiac arrest [Unknown]
  - Alanine aminotransferase abnormal [Unknown]
  - Hyponatraemia [Unknown]

NARRATIVE: CASE EVENT DATE: 201108
